FAERS Safety Report 17865049 (Version 1)
Quarter: 2020Q2

REPORT INFORMATION
  Report Type: Spontaneous
  Country: US (occurrence: US)
  Receive Date: 20200604
  Receipt Date: 20200604
  Transmission Date: 20200714
  Serious: Yes (Hospitalization)
  Sender: FDA-Public Use
  Company Number: None

PATIENT
  Age: 78 Year
  Sex: Male
  Weight: 70.76 kg

DRUGS (2)
  1. DIVALPROEX [Suspect]
     Active Substance: DIVALPROEX SODIUM
     Indication: DEPRESSION
     Route: 048
     Dates: start: 20191212, end: 20191216
  2. MIRTAZPINE [Suspect]
     Active Substance: MIRTAZAPINE
     Indication: INSOMNIA
     Route: 048
     Dates: start: 20191212, end: 20191216

REACTIONS (8)
  - Depression [None]
  - Treatment noncompliance [None]
  - Somnolence [None]
  - Hyperammonaemia [None]
  - Delusion [None]
  - Antipsychotic drug level decreased [None]
  - Insomnia [None]
  - Mental status changes [None]

NARRATIVE: CASE EVENT DATE: 20191216
